FAERS Safety Report 9989136 (Version 2)
Quarter: 2014Q1

REPORT INFORMATION
  Report Type: Report from Study
  Country: US (occurrence: US)
  Receive Date: 20140310
  Receipt Date: 20140310
  Transmission Date: 20141002
  Serious: No
  Sender: FDA-Public Use
  Company Number: US-ABBVIE-12P-163-0975541-00

PATIENT
  Age: 59 Year
  Sex: Female
  Weight: 75.36 kg

DRUGS (7)
  1. HUMIRA [Suspect]
     Indication: RHEUMATOID ARTHRITIS
     Route: 058
     Dates: start: 201206, end: 201212
  2. SYNTHROID [Concomitant]
     Indication: HYPOTHYROIDISM
  3. PREMARIN [Concomitant]
     Indication: MENOPAUSE
  4. LEFLUNOMIDE [Concomitant]
     Indication: RHEUMATOID ARTHRITIS
  5. LIPITOR [Concomitant]
     Indication: BLOOD CHOLESTEROL
  6. SYMPONI [Concomitant]
     Indication: RHEUMATOID ARTHRITIS
     Dates: start: 201301, end: 201304
  7. XELJANZ [Concomitant]
     Indication: RHEUMATOID ARTHRITIS
     Dates: start: 201305

REACTIONS (16)
  - Dry eye [Not Recovered/Not Resolved]
  - Eye irritation [Not Recovered/Not Resolved]
  - Eye infection [Recovering/Resolving]
  - Injection site erythema [Recovered/Resolved]
  - Dry mouth [Not Recovered/Not Resolved]
  - Injection site pain [Recovered/Resolved]
  - Injection site warmth [Not Recovered/Not Resolved]
  - Urticaria [Recovered/Resolved]
  - Urticaria [Recovered/Resolved]
  - Rash [Recovered/Resolved]
  - Rash [Recovered/Resolved]
  - Upper respiratory tract infection [Not Recovered/Not Resolved]
  - Injection site erythema [Recovered/Resolved]
  - Local swelling [Recovered/Resolved]
  - Poor quality sleep [Recovered/Resolved]
  - Rash [Recovered/Resolved]
